FAERS Safety Report 9522495 (Version 1)
Quarter: 2013Q1

REPORT INFORMATION
  Report Type: Spontaneous
  Country: US (occurrence: None)
  Receive Date: 20130305
  Receipt Date: 20130305
  Transmission Date: 20140127
  Serious: Yes (Other)
  Sender: FDA-Public Use
  Company Number: 163-21880-12063674

PATIENT
  Age: 50 Year
  Sex: Male
  Weight: 70.31 kg

DRUGS (6)
  1. REVLIMID ( LENALIDOMIDE) ( CAPSULES) [Suspect]
     Indication: PLASMA CELL MYELOMA
     Dosage: 25 MG, 21 IN 21 D, PO
     Route: 048
     Dates: start: 20110920
  2. ASPIRIN (ACETYLSALICYLIC ACID) [Concomitant]
  3. BIAXIN (CLARITHROMYCIN) [Concomitant]
  4. DEXAMETHASONE (DEXAMETHASONE) [Concomitant]
  5. FISH OIL (FISH OIL) [Concomitant]
  6. VITAMIN D (ERGOCALCIFEROL) [Concomitant]

REACTIONS (2)
  - Thrombosis [None]
  - Swelling face [None]
